FAERS Safety Report 15517156 (Version 1)
Quarter: 2018Q4

REPORT INFORMATION
  Report Type: Report from Study
  Country: US (occurrence: US)
  Receive Date: 20181017
  Receipt Date: 20181017
  Transmission Date: 20190205
  Serious: Yes (Hospitalization)
  Sender: FDA-Public Use
  Company Number: US-AMGEN-USASL2018119021

PATIENT
  Age: 64 Year
  Sex: Female
  Weight: 121.54 kg

DRUGS (5)
  1. KYPROLIS [Suspect]
     Active Substance: CARFILZOMIB
     Dosage: UNK
     Route: 065
     Dates: start: 20180904
  2. KYPROLIS [Suspect]
     Active Substance: CARFILZOMIB
     Indication: PRODUCT USED FOR UNKNOWN INDICATION
     Dosage: 20 MG/M2 (44 MG), UNK (DAY 1AND 2)
     Route: 065
     Dates: start: 20180709, end: 20180710
  3. KYPROLIS [Suspect]
     Active Substance: CARFILZOMIB
     Dosage: UNK (SECOND CYCLE TILL DAY 8)
     Route: 065
     Dates: start: 2018, end: 20180820
  4. KYPROLIS [Suspect]
     Active Substance: CARFILZOMIB
     Dosage: 56 MG/M2 (124 MG), UNK (DAY 8, 9, 15 AND 16 OF CYCLE 1)
     Route: 065
     Dates: start: 201807, end: 2018
  5. DECADRON [Concomitant]
     Active Substance: DEXAMETHASONE
     Dosage: UNK

REACTIONS (2)
  - Chest pain [Recovered/Resolved]
  - Dyspnoea [Recovered/Resolved]

NARRATIVE: CASE EVENT DATE: 20180821
